FAERS Safety Report 6022298-9 (Version None)
Quarter: 2008Q4

REPORT INFORMATION
  Report Type: 
  Country: None (occurrence: None)
  Receive Date: 20081230
  Receipt Date: 20081224
  Transmission Date: 20090506
  Serious: Yes (Death)
  Sender: FDA-Public Use
  Company Number: FR-JNJFOC-20081206771

PATIENT
  Age: 85 Year
  Sex: Male

DRUGS (3)
  1. TAVANIC [Suspect]
     Indication: PNEUMONIA
     Route: 065
  2. AUGMENTIN [Concomitant]
     Indication: PNEUMONIA
     Route: 065
  3. ROCEPHIN [Concomitant]
     Indication: PNEUMONIA
     Route: 065

REACTIONS (2)
  - SUDDEN DEATH [None]
  - TREMOR [None]
